FAERS Safety Report 11559942 (Version 2)
Quarter: 2015Q4

REPORT INFORMATION
  Report Type: Report from Study
  Country: US (occurrence: US)
  Receive Date: 20150928
  Receipt Date: 20151014
  Transmission Date: 20160304
  Serious: Yes (Hospitalization, Other)
  Sender: FDA-Public Use
  Company Number: US-BAYER-2015-425630

PATIENT
  Age: 60 Year
  Sex: Female

DRUGS (11)
  1. NORVASC [Concomitant]
     Active Substance: AMLODIPINE BESYLATE
  2. XANAX [Concomitant]
     Active Substance: ALPRAZOLAM
  3. CARVEDILOL. [Concomitant]
     Active Substance: CARVEDILOL
  4. WARFARIN [Concomitant]
     Active Substance: WARFARIN
  5. SPIRONOLACTONE. [Concomitant]
     Active Substance: SPIRONOLACTONE
  6. VALSARTAN. [Concomitant]
     Active Substance: VALSARTAN
  7. OXYCODONE [Concomitant]
     Active Substance: OXYCODONE
  8. NEXAVAR [Suspect]
     Active Substance: SORAFENIB
     Indication: HEPATIC CANCER
     Dosage: 400 MG, BID
     Route: 048
     Dates: start: 20150820, end: 20150926
  9. AMLODIPINE [Concomitant]
     Active Substance: AMLODIPINE BESYLATE
  10. DIGOXIN. [Concomitant]
     Active Substance: DIGOXIN
  11. CRESTOR [Concomitant]
     Active Substance: ROSUVASTATIN CALCIUM

REACTIONS (3)
  - Post procedural complication [Not Recovered/Not Resolved]
  - Vascular pseudoaneurysm [Unknown]
  - Vascular pseudoaneurysm ruptured [Unknown]

NARRATIVE: CASE EVENT DATE: 20150911
